FAERS Safety Report 5353287-5 (Version None)
Quarter: 2007Q2

REPORT INFORMATION
  Report Type: 
  Country: None (occurrence: None)
  Receive Date: 20070518
  Receipt Date: 20070212
  Transmission Date: 20071010
  Serious: No
  Sender: FDA-Public Use
  Company Number: TPA2007A00367

PATIENT
  Age: 25 Year
  Sex: Female

DRUGS (1)
  1. ROZEREM [Suspect]
     Indication: INSOMNIA
     Dosage: 8 MG, QHS, PER ORAL
     Route: 048
     Dates: start: 20061201, end: 20061201

REACTIONS (2)
  - PAIN [None]
  - SOMNOLENCE [None]
